FAERS Safety Report 5094627-4 (Version None)
Quarter: 2006Q3

REPORT INFORMATION
  Report Type: 
  Country: None (occurrence: None)
  Receive Date: 20060830
  Receipt Date: 20060814
  Transmission Date: 20061208
  Serious: Yes (Hospitalization)
  Sender: FDA-Public Use
  Company Number: US200605006218

PATIENT
  Sex: Male
  Weight: 105.2 kg

DRUGS (7)
  1. ZYPREXA [Suspect]
     Dosage: SEE IMAGE
     Dates: start: 20010101
  2. ZYPREXA [Suspect]
     Dosage: SEE IMAGE
     Dates: start: 20010101
  3. QUETIAPINE FUMARATE [Concomitant]
  4. RISPERIDONE [Concomitant]
  5. HALOPERIDOL [Concomitant]
  6. FLUOXETINE HCL [Concomitant]
  7. MIRTAZAPINE [Concomitant]

REACTIONS (11)
  - ACETONAEMIA [None]
  - CARDIAC DISORDER [None]
  - DIABETES MELLITUS [None]
  - GLUCOSE TOLERANCE IMPAIRED [None]
  - GLYCOSURIA [None]
  - HYPERGLYCAEMIC HYPEROSMOLAR NONKETOTIC SYNDROME [None]
  - HYPOGLYCAEMIA [None]
  - KETONURIA [None]
  - LACTIC ACIDOSIS [None]
  - METABOLIC ACIDOSIS [None]
  - METABOLIC SYNDROME [None]
